FAERS Safety Report 5191153-9 (Version None)
Quarter: 2006Q4

REPORT INFORMATION
  Report Type: 
  Country: None (occurrence: None)
  Receive Date: 20061226
  Receipt Date: 20061120
  Transmission Date: 20070319
  Serious: Yes (Disabling)
  Sender: FDA-Public Use
  Company Number: 2006GB02119

PATIENT
  Age: 59 Year
  Sex: Female

DRUGS (1)
  1. ZOMIG [Suspect]
     Indication: MIGRAINE
     Dosage: 1-2 TABLETS IN 2 DAYS ONCE IN 5 WEKS
     Route: 048
     Dates: start: 20010101

REACTIONS (5)
  - DEPRESSED MOOD [None]
  - EAR PAIN [None]
  - EYELID MARGIN CRUSTING [None]
  - NASAL CONGESTION [None]
  - RHINORRHOEA [None]
